FAERS Safety Report 7795011-2 (Version None)
Quarter: 2011Q4

REPORT INFORMATION
  Report Type: 
  Country: None (occurrence: None)
  Receive Date: 20111004
  Receipt Date: 20110928
  Transmission Date: 20120403
  Serious: Yes (Other)
  Sender: FDA-Public Use
  Company Number: PHEH2011US04024

PATIENT
  Sex: Male
  Weight: 33.1 kg

DRUGS (8)
  1. FOCALIN XR [Suspect]
     Dosage: 10 MG, QD
     Route: 048
     Dates: start: 20080715
  2. XOPENEX [Concomitant]
  3. FOCALIN XR [Suspect]
     Indication: ATTENTION DEFICIT/HYPERACTIVITY DISORDER
     Dosage: 5 MG/ 1 OR 2 XDAY
  4. STRATTERA [Suspect]
     Indication: ATTENTION DEFICIT/HYPERACTIVITY DISORDER
     Dosage: UNK UKN, 1XDAY
     Route: 048
     Dates: start: 20080814, end: 20081113
  5. FLOVENT [Concomitant]
  6. FOCALIN XR [Suspect]
     Dosage: 15 MG, 1XDAY
  7. ALBUTEROL [Concomitant]
  8. FOCALIN XR [Suspect]
     Dosage: 20 MG, 1XDAY

REACTIONS (3)
  - ELECTROCARDIOGRAM QT PROLONGED [None]
  - DEPRESSED MOOD [None]
  - CRYING [None]
